FAERS Safety Report 9237022 (Version 1)
Quarter: 2013Q2

REPORT INFORMATION
  Report Type: Spontaneous
  Country: GB (occurrence: None)
  Receive Date: 20130415
  Receipt Date: 20130415
  Transmission Date: 20140414
  Serious: Yes (Disabling, Other)
  Sender: FDA-Public Use
  Company Number: AUR-APL-2013-02933

PATIENT
  Age: 64 Year
  Sex: Female
  Weight: 57.15 kg

DRUGS (6)
  1. OLANZAPINE [Suspect]
     Indication: BIPOLAR DISORDER
     Route: 048
     Dates: start: 2011, end: 2011
  2. ALFACALCIDOL [Concomitant]
  3. AMLODIPINE (AMLODIPINE) [Concomitant]
  4. DEPAKOTE [Concomitant]
  5. IRON [Concomitant]
  6. PROPRANOLOL (PROPRANOLOL) [Concomitant]

REACTIONS (2)
  - Dyskinesia [None]
  - Off label use [None]
